FAERS Safety Report 14613505 (Version 1)
Quarter: 2018Q1

REPORT INFORMATION
  Report Type: Spontaneous
  Country: FR (occurrence: FR)
  Receive Date: 20180308
  Receipt Date: 20180308
  Transmission Date: 20180509
  Serious: Yes (Other)
  Sender: FDA-Public Use
  Company Number: FR-MERCK KGAA-2043298

PATIENT
  Sex: Female

DRUGS (1)
  1. NOVOTHYROX [Suspect]
     Active Substance: LEVOTHYROXINE SODIUM
     Indication: PRODUCT USED FOR UNKNOWN INDICATION

REACTIONS (13)
  - Headache [None]
  - Myalgia [None]
  - Disturbance in attention [None]
  - Social problem [None]
  - Depressed mood [None]
  - Feeling abnormal [None]
  - Poor quality sleep [None]
  - Weight increased [None]
  - Fatigue [None]
  - Memory impairment [None]
  - Apathy [None]
  - Social avoidant behaviour [None]
  - Dizziness [None]
